FAERS Safety Report 22871408 (Version 2)
Quarter: 2024Q2

REPORT INFORMATION
  Report Type: Spontaneous
  Country: US (occurrence: None)
  Receive Date: 20230828
  Receipt Date: 20240418
  Transmission Date: 20240716
  Serious: No
  Sender: FDA-Public Use
  Company Number: US-ROCHE-3314834

PATIENT
  Sex: Female
  Weight: 66.738 kg

DRUGS (1)
  1. XOFLUZA [Suspect]
     Active Substance: BALOXAVIR MARBOXIL
     Indication: Antiviral prophylaxis
     Dosage: ONE 40MG TABLET BY MOUTH ONCE DAILY FOR ONE DOSE.
     Route: 048
     Dates: start: 20230227, end: 20230227

REACTIONS (1)
  - Influenza [Unknown]

NARRATIVE: CASE EVENT DATE: 20230320
